FAERS Safety Report 9683472 (Version 1)
Quarter: 2013Q4

REPORT INFORMATION
  Report Type: Spontaneous
  Country: US (occurrence: US)
  Receive Date: 20131112
  Receipt Date: 20131112
  Transmission Date: 20140711
  Serious: No
  Sender: FDA-Public Use
  Company Number: US-009507513-1311USA001745

PATIENT
  Age: 86 Year
  Sex: Female

DRUGS (2)
  1. PROVENTIL [Suspect]
     Dosage: UNKNOWN
     Route: 055
  2. FORADIL [Suspect]
     Indication: CHRONIC OBSTRUCTIVE PULMONARY DISEASE
     Dosage: 1 INHALATION TWICE DAILY
     Route: 055
     Dates: start: 20131031, end: 20131101

REACTIONS (1)
  - Somnolence [Recovering/Resolving]
